FAERS Safety Report 11173233 (Version 2)
Quarter: 2015Q3

REPORT INFORMATION
  Report Type: Spontaneous
  Country: US (occurrence: US)
  Receive Date: 20150608
  Receipt Date: 20150702
  Transmission Date: 20151125
  Serious: Yes (Other)
  Sender: FDA-Public Use
  Company Number: US-GLAXOSMITHKLINE-US2015GSK078719

PATIENT
  Age: 59 Year
  Sex: Female
  Weight: 86.62 kg

DRUGS (4)
  1. COREG [Concomitant]
     Active Substance: CARVEDILOL
     Dosage: 25 MG, BID
     Route: 048
  2. SANCUSO PATCH [Concomitant]
     Dosage: UNK, PRN
     Route: 061
  3. ALKERAN [Suspect]
     Active Substance: MELPHALAN
     Indication: PLASMA CELL MYELOMA
     Dosage: 120 MG/M2, SINGLE
     Route: 042
     Dates: start: 20110503, end: 20110503
  4. LYRICA [Concomitant]
     Active Substance: PREGABALIN
     Dosage: 300 MG, TID
     Route: 048

REACTIONS (1)
  - Sepsis [Recovered/Resolved]

NARRATIVE: CASE EVENT DATE: 20110509
